FAERS Safety Report 8429151-1 (Version None)
Quarter: 2012Q2

REPORT INFORMATION
  Report Type: 
  Country: None (occurrence: None)
  Receive Date: 20120612
  Receipt Date: 20120604
  Transmission Date: 20120825
  Serious: Yes (Death, Hospitalization)
  Sender: FDA-Public Use
  Company Number: FR-JNJFOC-20110510590

PATIENT
  Sex: Male
  Weight: 78 kg

DRUGS (11)
  1. RIBAVIRIN [Suspect]
     Indication: HEPATITIS C
     Route: 048
     Dates: start: 20110422, end: 20110515
  2. PEGINTERFERON ALFA-2A [Suspect]
     Indication: HEPATITIS C
     Route: 058
     Dates: start: 20110422, end: 20110515
  3. DURAGESIC-100 [Suspect]
     Indication: PAIN
  4. LEVOTHYROXINE SODIUM [Concomitant]
     Indication: HYPOTHYROIDISM
  5. ACETAMINOPHEN [Concomitant]
  6. TELAPREVIR [Suspect]
     Indication: HEPATITIS C
     Route: 048
     Dates: start: 20110422, end: 20110515
  7. ALUMINUM HYDROXIDE AND MAGNESIUM TRISILICATE [Concomitant]
  8. DIAMICRON [Concomitant]
     Indication: DIABETES MELLITUS
     Route: 048
  9. TEMAZEPAM [Concomitant]
  10. METFORMIN HCL [Concomitant]
     Indication: DIABETES MELLITUS
     Route: 048
  11. DICETEL [Concomitant]

REACTIONS (10)
  - RENAL FAILURE [None]
  - URINARY TRACT INFECTION [None]
  - NAUSEA [None]
  - ACIDOSIS [None]
  - MULTI-ORGAN FAILURE [None]
  - SEPTIC SHOCK [None]
  - VOMITING [None]
  - FOOD INTOLERANCE [None]
  - GASTROENTERITIS STAPHYLOCOCCAL [None]
  - ABDOMINAL PAIN UPPER [None]
